FAERS Safety Report 26172264 (Version 2)
Quarter: 2025Q4

REPORT INFORMATION
  Report Type: Spontaneous
  Country: US (occurrence: US)
  Receive Date: 20251218
  Receipt Date: 20251222
  Transmission Date: 20260117
  Serious: Yes (Death, Hospitalization)
  Sender: GAMIDA CELL
  Company Number: US-GAMIDA CELL LTD.-GC-25US000021

PATIENT
  Age: 71 Year
  Weight: 65 kg

DRUGS (1)
  1. OMISIRGE [Suspect]
     Active Substance: OMIDUBICEL-ONLV
     Indication: Acute myeloid leukaemia
     Dosage: UNK

REACTIONS (8)
  - Coagulopathy [Fatal]
  - Shock [Fatal]
  - Lactic acidosis [Fatal]
  - Hypoglycaemia [Unknown]
  - Intestinal ischaemia [Unknown]
  - Pneumonia [Unknown]
  - Epstein-Barr virus associated lymphoproliferative disorder [Unknown]
  - Acute kidney injury [Unknown]
